FAERS Safety Report 11510178 (Version 1)
Quarter: 2015Q3

REPORT INFORMATION
  Report Type: Spontaneous
  Country: US (occurrence: US)
  Receive Date: 20150915
  Receipt Date: 20150915
  Transmission Date: 20151125
  Serious: No
  Sender: FDA-Public Use
  Company Number: US-JNJFOC-20150814145

PATIENT
  Age: 80 Year
  Sex: Female
  Weight: 52.16 kg

DRUGS (1)
  1. TYLENOL EXTRA STRENGTH [Suspect]
     Active Substance: ACETAMINOPHEN
     Indication: HEADACHE
     Dosage: 1 CAPLET EVERY 3 HOURS, NO MORE THAN 4 CAPLETS IN 24 HOURS
     Route: 048

REACTIONS (5)
  - Product label issue [Unknown]
  - Product lot number issue [Unknown]
  - Inappropriate schedule of drug administration [Unknown]
  - Product expiration date issue [Unknown]
  - Incorrect drug administration duration [Unknown]
